FAERS Safety Report 15238477 (Version 2)
Quarter: 2018Q3

REPORT INFORMATION
  Report Type: Spontaneous
  Country: BR (occurrence: BR)
  Receive Date: 20180803
  Receipt Date: 20180829
  Transmission Date: 20181010
  Serious: No
  Sender: FDA-Public Use
  Company Number: BR-SA-2018SA203615

PATIENT
  Age: 39 Year
  Sex: Female
  Weight: 68 kg

DRUGS (3)
  1. CLEXANE [Suspect]
     Active Substance: ENOXAPARIN SODIUM
     Indication: HYPERCOAGULATION
     Dosage: 40 MG, UNK
     Route: 058
     Dates: start: 20180719
  2. METHYLCOBALAMIN. [Concomitant]
     Active Substance: METHYLCOBALAMIN
     Indication: HYPERCOAGULATION
     Dosage: UNK UNK, UNK
     Route: 048
  3. METHYL FOLATE [Concomitant]
     Indication: HYPERCOAGULATION
     Dosage: UNK UNK, UNK
     Route: 048

REACTIONS (1)
  - Exposure during pregnancy [Unknown]
